FAERS Safety Report 24145368 (Version 2)
Quarter: 2024Q3

REPORT INFORMATION
  Report Type: Other
  Country: US (occurrence: US)
  Receive Date: 20240729
  Receipt Date: 20240815
  Transmission Date: 20241017
  Serious: No
  Sender: TRAVERE THERAPEUTICS
  Company Number: US-TRAVERE-2024TVT00588

PATIENT
  Age: 35 Year
  Sex: Female

DRUGS (3)
  1. FILSPARI [Suspect]
     Active Substance: SPARSENTAN
     Indication: IgA nephropathy
     Route: 048
     Dates: start: 20240608
  2. FILSPARI [Suspect]
     Active Substance: SPARSENTAN
     Route: 048
  3. TARPEYO [Concomitant]
     Active Substance: BUDESONIDE
     Dates: start: 20240608

REACTIONS (1)
  - Fatigue [None]

NARRATIVE: CASE EVENT DATE: 20240608
